FAERS Safety Report 16089351 (Version 8)
Quarter: 2021Q1

REPORT INFORMATION
  Report Type: Spontaneous
  Country: US (occurrence: US)
  Receive Date: 20190319
  Receipt Date: 20210329
  Transmission Date: 20210419
  Serious: Yes (Hospitalization, Other)
  Sender: FDA-Public Use
  Company Number: US-PFIZER INC-2019115838

PATIENT
  Age: 67 Year
  Sex: Male

DRUGS (1)
  1. XELJANZ [Suspect]
     Active Substance: TOFACITINIB CITRATE
     Indication: RHEUMATOID ARTHRITIS
     Dosage: 5 MG, 2X/DAY
     Dates: start: 2018

REACTIONS (9)
  - Pain in extremity [Unknown]
  - Intentional product misuse [Unknown]
  - Hypoacusis [Unknown]
  - Influenza [Unknown]
  - Infection [Unknown]
  - Condition aggravated [Recovering/Resolving]
  - Viral infection [Unknown]
  - Pain [Unknown]
  - Loss of consciousness [Recovered/Resolved]

NARRATIVE: CASE EVENT DATE: 20200511
